FAERS Safety Report 5716245-4 (Version None)
Quarter: 2008Q2

REPORT INFORMATION
  Report Type: 
  Country: None (occurrence: None)
  Receive Date: 20080424
  Receipt Date: 20080422
  Transmission Date: 20081010
  Serious: Yes (Other)
  Sender: FDA-Public Use
  Company Number: A0720980A

PATIENT
  Age: 63 Year
  Sex: Male

DRUGS (1)
  1. LOVAZA [Suspect]
     Indication: ILL-DEFINED DISORDER
     Dosage: 1000MG PER DAY
     Route: 048
     Dates: start: 20070110, end: 20070605

REACTIONS (1)
  - THROMBOCYTOPENIA [None]
